FAERS Safety Report 9812372 (Version 5)
Quarter: 2014Q3

REPORT INFORMATION
  Report Type: Spontaneous
  Country: DE (occurrence: DE)
  Receive Date: 20140113
  Receipt Date: 20140707
  Transmission Date: 20150326
  Serious: Yes (Hospitalization, Other)
  Sender: FDA-Public Use
  Company Number: DE-ROCHE-1331951

PATIENT
  Age: 72 Year
  Sex: Female
  Weight: 90 kg

DRUGS (5)
  1. BONDRONAT [Suspect]
     Active Substance: IBANDRONIC ACID
     Route: 042
     Dates: start: 200404
  2. GABAPENTIN. [Concomitant]
     Active Substance: GABAPENTIN
  3. PACLITAXEL. [Suspect]
     Active Substance: PACLITAXEL
     Indication: PRODUCT USED FOR UNKNOWN INDICATION
     Route: 065
  4. LETROZOLE. [Concomitant]
     Active Substance: LETROZOLE
     Route: 065
     Dates: start: 20131210
  5. BONDRONAT [Suspect]
     Active Substance: IBANDRONIC ACID
     Indication: METASTASES TO BONE
     Route: 042
     Dates: start: 20120827

REACTIONS (8)
  - Foot fracture [Unknown]
  - Dysgeusia [Unknown]
  - Oedema peripheral [Unknown]
  - Formication [Unknown]
  - Neuropathy peripheral [Unknown]
  - Hepatic steatosis [Unknown]
  - Fatigue [Unknown]
  - Foot fracture [Not Recovered/Not Resolved]

NARRATIVE: CASE EVENT DATE: 201310
